FAERS Safety Report 17763166 (Version 1)
Quarter: 2020Q2

REPORT INFORMATION
  Report Type: Spontaneous
  Country: US (occurrence: US)
  Receive Date: 20200508
  Receipt Date: 20200508
  Transmission Date: 20200714
  Serious: No
  Sender: FDA-Public Use
  Company Number: US-009507513-2005USA000377

PATIENT
  Sex: Female

DRUGS (4)
  1. ENBREL [Concomitant]
     Active Substance: ETANERCEPT
  2. FORTEO [Concomitant]
     Active Substance: TERIPARATIDE
  3. ASMANEX HFA [Suspect]
     Active Substance: MOMETASONE FUROATE
     Dosage: 1 PUFF IN THE MORNING AND 1 PUFF AT NIGHT
     Route: 055
     Dates: end: 20200428
  4. ASMANEX HFA [Suspect]
     Active Substance: MOMETASONE FUROATE
     Indication: BRONCHIOLITIS
     Dosage: 2 PUFFS IN THE MORNING AND 2 PUFFS AT NIGHT
     Route: 055
     Dates: start: 20190730

REACTIONS (4)
  - Muscle spasms [Not Recovered/Not Resolved]
  - Inappropriate schedule of product administration [Unknown]
  - Product use in unapproved indication [Unknown]
  - Therapeutic product effect incomplete [Not Recovered/Not Resolved]
